FAERS Safety Report 6254930-9 (Version None)
Quarter: 2009Q2

REPORT INFORMATION
  Report Type: 
  Country: None (occurrence: None)
  Receive Date: 20090630
  Receipt Date: 20090619
  Transmission Date: 20091009
  Serious: Yes (Other)
  Sender: FDA-Public Use
  Company Number: 2009AP002491

PATIENT
  Age: 81 Year
  Sex: Male

DRUGS (8)
  1. CLARITHROMYCIN [Suspect]
     Indication: HELICOBACTER GASTRITIS
     Dosage: 500 MG; BID
  2. FENTANYL [Suspect]
     Indication: NECK PAIN
     Dosage: 200 UG; QOD TDER
     Route: 062
  3. SALBUTAMOL (SALBUTAMOL) [Concomitant]
  4. IPRATROPIUM BROMIDE [Concomitant]
  5. PREDNISONE TAB [Concomitant]
  6. LEVOFLOXACIN [Concomitant]
  7. VANCOMYCIN [Concomitant]
  8. METRONIDAZOLE (METRONIDAZOLE) [Concomitant]

REACTIONS (17)
  - AGITATION [None]
  - CHRONIC OBSTRUCTIVE PULMONARY DISEASE [None]
  - CONFUSIONAL STATE [None]
  - DISORIENTATION [None]
  - DRUG INTERACTION [None]
  - DRUG WITHDRAWAL SYNDROME [None]
  - HELICOBACTER GASTRITIS [None]
  - IRON DEFICIENCY ANAEMIA [None]
  - LEUKOCYTOSIS [None]
  - MIOSIS [None]
  - PAROTITIS [None]
  - RESPIRATORY DISTRESS [None]
  - RESPIRATORY RATE DECREASED [None]
  - SPUTUM PURULENT [None]
  - TACHYCARDIA [None]
  - UNRESPONSIVE TO STIMULI [None]
  - UPPER GASTROINTESTINAL HAEMORRHAGE [None]
